FAERS Safety Report 19865207 (Version 1)
Quarter: 2021Q3

REPORT INFORMATION
  Report Type: Report from Study
  Country: US (occurrence: US)
  Receive Date: 20210922
  Receipt Date: 20210922
  Transmission Date: 20211014
  Serious: Yes (Other)
  Sender: FDA-Public Use
  Company Number: US-BRISTOL-MYERS SQUIBB COMPANY-BMS-2021-093365

PATIENT
  Age: 71 Year
  Sex: Female

DRUGS (1)
  1. APIXABAN [Suspect]
     Active Substance: APIXABAN
     Indication: CEREBROVASCULAR ACCIDENT PROPHYLAXIS
     Dosage: 5 MILLIGRAM, BID
     Route: 048

REACTIONS (9)
  - Atrial fibrillation [Unknown]
  - Visual impairment [Unknown]
  - Myocardial infarction [Unknown]
  - Hypoacusis [Unknown]
  - Cardiac arrest [Unknown]
  - Haemorrhage [Unknown]
  - Fall [Unknown]
  - Bronchitis [Unknown]
  - Tachycardia [Unknown]

NARRATIVE: CASE EVENT DATE: 20181126
